FAERS Safety Report 10763238 (Version 2)
Quarter: 2015Q1

REPORT INFORMATION
  Report Type: Report from Study
  Country: AR (occurrence: AR)
  Receive Date: 20150204
  Receipt Date: 20150219
  Transmission Date: 20150721
  Serious: Yes (Other)
  Sender: FDA-Public Use
  Company Number: PHHY2014AR151910

PATIENT
  Sex: Female

DRUGS (2)
  1. EXFORGE [Suspect]
     Active Substance: AMLODIPINE BESYLATE\VALSARTAN
     Indication: HYPERTENSION
     Dosage: 1 DF (1 TABLET), QD
     Route: 048
     Dates: start: 201402
  2. LUCENTIS [Suspect]
     Active Substance: RANIBIZUMAB
     Indication: PRODUCT USED FOR UNKNOWN INDICATION
     Dosage: UNK (IN RIGHT EYE)
     Route: 031
     Dates: start: 201402

REACTIONS (7)
  - Visual acuity reduced [Unknown]
  - Visual impairment [Unknown]
  - Age-related macular degeneration [Unknown]
  - Restlessness [Unknown]
  - Chromatopsia [Unknown]
  - Macular oedema [Unknown]
  - Fear [Unknown]
